FAERS Safety Report 10056347 (Version 1)
Quarter: 2014Q2

REPORT INFORMATION
  Report Type: Spontaneous
  Country: FR (occurrence: None)
  Receive Date: 20140401
  Receipt Date: 20140401
  Transmission Date: 20141212
  Serious: Yes (Other)
  Sender: FDA-Public Use
  Company Number: FK201401062

PATIENT
  Age: 70 Year
  Sex: Female

DRUGS (3)
  1. PROTAMINE SULFATE [Suspect]
     Indication: PRODUCT USED FOR UNKNOWN INDICATION
  2. FUROSEMIDE (FUROSEMIDE) [Concomitant]
  3. ENALAPRIL (ENALAPRIL) [Concomitant]

REACTIONS (1)
  - Anaphylactic reaction [None]
